FAERS Safety Report 6344403-7 (Version None)
Quarter: 2009Q3

REPORT INFORMATION
  Report Type: 
  Country: None (occurrence: None)
  Receive Date: 20090908
  Receipt Date: 20090831
  Transmission Date: 20100115
  Serious: Yes (Other)
  Sender: FDA-Public Use
  Company Number: PHHY2009MX37313

PATIENT
  Age: 75 Year
  Sex: Female

DRUGS (2)
  1. EXELON [Suspect]
     Indication: DEMENTIA ALZHEIMER'S TYPE
     Dosage: 1 PATCH (10CM2) PER DAY
     Route: 062
     Dates: start: 20090301, end: 20090827
  2. RISPERDAL [Suspect]
     Dosage: 1 TABLET PER DAY
     Route: 048
     Dates: end: 20090827

REACTIONS (2)
  - SEDATION [None]
  - SPEECH DISORDER [None]
